FAERS Safety Report 7279214-1 (Version None)
Quarter: 2011Q1

REPORT INFORMATION
  Report Type: 
  Country: None (occurrence: None)
  Receive Date: 20110207
  Receipt Date: 20110131
  Transmission Date: 20110831
  Serious: Yes (Death, Life-Threatening, Hospitalization)
  Sender: FDA-Public Use
  Company Number: US-GILEAD-2010-0034721

PATIENT
  Sex: Female
  Weight: 60.382 kg

DRUGS (16)
  1. OMEPRAZOLE [Concomitant]
     Indication: GASTROOESOPHAGEAL REFLUX PROPHYLAXIS
     Dates: start: 20100322
  2. COENZYME Q10 [Concomitant]
     Indication: MEDICAL DIET
     Dates: start: 20080101
  3. ALENDRONATE SODIUM [Concomitant]
     Indication: OSTEOPENIA
     Dates: start: 20050101, end: 20101205
  4. AMBRISENTAN [Suspect]
     Indication: IDIOPATHIC PULMONARY FIBROSIS
     Route: 048
     Dates: start: 20100609
  5. PREDNISONE [Concomitant]
     Indication: COUGH
     Dates: start: 20101030, end: 20101203
  6. SIMVASTATIN [Concomitant]
     Indication: HYPERCHOLESTEROLAEMIA
     Dates: start: 20080101
  7. VITAMIN D [Concomitant]
     Indication: OSTEOPENIA
     Dates: start: 20050101, end: 20101205
  8. FLAX SEED OIL [Concomitant]
     Indication: CONSTIPATION
     Dates: start: 20101027
  9. OXYGEN [Concomitant]
     Indication: COUGH
     Dates: start: 20101030
  10. SYNTHROID [Concomitant]
     Indication: HYPOTHYROIDISM
     Dates: start: 20020101
  11. SYMBICORT [Concomitant]
     Indication: DYSPNOEA EXERTIONAL
     Dates: start: 20101029
  12. CALCIUM/MAGNESIUM COMBINATION [Concomitant]
     Indication: MEDICAL DIET
     Dates: start: 20020101
  13. OMEGA 3 FATTY ACID [Concomitant]
     Indication: MEDICAL DIET
     Dates: start: 20080101
  14. ZYRTEC [Concomitant]
     Indication: SEASONAL ALLERGY
     Dates: start: 20100510
  15. AMBRISENTAN [Suspect]
     Route: 048
     Dates: start: 20100525, end: 20100608
  16. XOPENEX [Concomitant]
     Indication: DYSPNOEA
     Dates: start: 20100101, end: 20101205

REACTIONS (1)
  - IDIOPATHIC PULMONARY FIBROSIS [None]
